FAERS Safety Report 23317355 (Version 6)
Quarter: 2024Q4

REPORT INFORMATION
  Report Type: Spontaneous
  Country: US (occurrence: US)
  Receive Date: 20231219
  Receipt Date: 20241011
  Transmission Date: 20250115
  Serious: No
  Sender: ROCHE
  Company Number: US-ROCHE-3388897

PATIENT
  Age: 20 Year
  Sex: Male

DRUGS (1)
  1. HEMLIBRA [Suspect]
     Active Substance: EMICIZUMAB-KXWH
     Indication: Factor VIII deficiency
     Dosage: STRENGTH: 150 MG/ML
     Route: 058
     Dates: start: 201810

REACTIONS (3)
  - Haemorrhage [Unknown]
  - Weight increased [Unknown]
  - Arthralgia [Unknown]

NARRATIVE: CASE EVENT DATE: 20240827
